FAERS Safety Report 12376931 (Version 1)
Quarter: 2016Q2

REPORT INFORMATION
  Report Type: Report from Study
  Country: US (occurrence: US)
  Receive Date: 20160517
  Receipt Date: 20160517
  Transmission Date: 20160815
  Serious: No
  Sender: FDA-Public Use
  Company Number: US-MALLINCKRODT-T201503740

PATIENT
  Sex: Female
  Weight: 66 kg

DRUGS (1)
  1. REPOSITORY CORTICOTROPIN INJECTION [Suspect]
     Active Substance: CORTICOTROPIN
     Indication: SARCOIDOSIS
     Dosage: 40 UNITS QOD
     Route: 065

REACTIONS (10)
  - Vaginal odour [Unknown]
  - Constipation [Unknown]
  - Fluid retention [Unknown]
  - Visual acuity reduced [Unknown]
  - Anger [Not Recovered/Not Resolved]
  - Acne [Unknown]
  - Cushingoid [Unknown]
  - Fungal infection [Unknown]
  - Weight increased [Unknown]
  - Dry eye [Unknown]
